FAERS Safety Report 12234383 (Version 1)
Quarter: 2016Q2

REPORT INFORMATION
  Report Type: Spontaneous
  Country: US (occurrence: US)
  Receive Date: 20160404
  Receipt Date: 20160404
  Transmission Date: 20160815
  Serious: No
  Sender: FDA-Public Use
  Company Number: US-GLAXOSMITHKLINE-US2016GSK040916

PATIENT
  Age: 10 Year
  Sex: Male

DRUGS (2)
  1. FLOVENT [Concomitant]
     Active Substance: FLUTICASONE PROPIONATE
  2. QVAR [Suspect]
     Active Substance: BECLOMETHASONE DIPROPIONATE

REACTIONS (4)
  - Chest pain [Unknown]
  - Asthma [Unknown]
  - Dyspnoea exertional [Unknown]
  - Drug ineffective [Unknown]
